FAERS Safety Report 25283578 (Version 2)
Quarter: 2025Q3

REPORT INFORMATION
  Report Type: Report from Study
  Country: US (occurrence: US)
  Receive Date: 20250508
  Receipt Date: 20250909
  Transmission Date: 20251020
  Serious: No
  Sender: MERCK SHARP & DOHME LLC
  Company Number: US-009507513-2282656

PATIENT
  Sex: Female
  Weight: 67.132 kg

DRUGS (23)
  1. SOTATERCEPT [Suspect]
     Active Substance: SOTATERCEPT
     Indication: Pulmonary arterial hypertension
  2. SOTATERCEPT [Suspect]
     Active Substance: SOTATERCEPT
     Route: 058
     Dates: start: 2024
  3. SOTATERCEPT [Suspect]
     Active Substance: SOTATERCEPT
  4. SOTATERCEPT [Suspect]
     Active Substance: SOTATERCEPT
  5. ORENITRAM [Suspect]
     Active Substance: TREPROSTINIL
  6. REMODULIN [Suspect]
     Active Substance: TREPROSTINIL
     Indication: Pulmonary arterial hypertension
     Route: 058
     Dates: start: 20230328
  7. REMODULIN [Suspect]
     Active Substance: TREPROSTINIL
     Indication: Pulmonary arterial hypertension
     Route: 058
  8. ADEMPAS [Concomitant]
     Active Substance: RIOCIGUAT
  9. SPIRONOLACTONE AND HYDROCHLOROTHIAZIDE [Concomitant]
     Active Substance: HYDROCHLOROTHIAZIDE\SPIRONOLACTONE
  10. METOPROLOL SUCCINATE [Concomitant]
     Active Substance: METOPROLOL SUCCINATE
  11. TYLENOL [Concomitant]
     Active Substance: ACETAMINOPHEN
  12. PRAVASTATIN SODIUM [Concomitant]
     Active Substance: PRAVASTATIN SODIUM
  13. VITAMIN D3 [Concomitant]
     Active Substance: CHOLECALCIFEROL
  14. POTASSIUM [Concomitant]
     Active Substance: POTASSIUM
  15. ASPIRIN [Concomitant]
     Active Substance: ASPIRIN
  16. DOXYCYCLINE HYCLATE [Concomitant]
     Active Substance: DOXYCYCLINE HYCLATE
  17. OFEV [Concomitant]
     Active Substance: NINTEDANIB
  18. OXYGEN [Concomitant]
     Active Substance: OXYGEN
  19. CALCIUM [Concomitant]
     Active Substance: CALCIUM
  20. LISINOPRIL [Concomitant]
     Active Substance: LISINOPRIL
  21. OMEPRAZOLE [Concomitant]
     Active Substance: OMEPRAZOLE
  22. TOPROL XL [Concomitant]
     Active Substance: METOPROLOL SUCCINATE
  23. PANTOPRAZOLE SODIUM [Concomitant]
     Active Substance: PANTOPRAZOLE SODIUM

REACTIONS (5)
  - Nausea [Unknown]
  - Headache [Recovered/Resolved]
  - Epistaxis [Unknown]
  - Headache [Recovered/Resolved]
  - Dizziness [Recovered/Resolved]
